FAERS Safety Report 4862791-5 (Version None)
Quarter: 2005Q4

REPORT INFORMATION
  Report Type: 
  Country: None (occurrence: None)
  Receive Date: 20051219
  Receipt Date: 20051206
  Transmission Date: 20060501
  Serious: Yes (Other)
  Sender: FDA-Public Use
  Company Number: 2005154574

PATIENT
  Age: 52 Year
  Sex: Female
  Weight: 68.9467 kg

DRUGS (3)
  1. VFEND [Suspect]
     Indication: BRONCHOPULMONARY ASPERGILLOSIS
     Dosage: 800 MG (400 MG, 2 IN 1 D)
     Dates: start: 20050923, end: 20051007
  2. ADVAIR DISKUS 100/50 [Concomitant]
  3. ALBUTEROL [Concomitant]

REACTIONS (8)
  - BLISTER [None]
  - GLARE [None]
  - HALO VISION [None]
  - NIGHT BLINDNESS [None]
  - PHOTOSENSITIVITY REACTION [None]
  - RASH [None]
  - VISION BLURRED [None]
  - XANTHOPSIA [None]
